FAERS Safety Report 23663762 (Version 2)
Quarter: 2024Q2

REPORT INFORMATION
  Report Type: Spontaneous
  Country: BR (occurrence: BR)
  Receive Date: 20240322
  Receipt Date: 20240403
  Transmission Date: 20240716
  Serious: Yes (Other)
  Sender: FDA-Public Use
  Company Number: BR-PFIZER INC-202400068489

PATIENT
  Age: 65 Year
  Sex: Male
  Weight: 60 kg

DRUGS (5)
  1. RUXIENCE [Suspect]
     Active Substance: RITUXIMAB-PVVR
     Indication: Diffuse large B-cell lymphoma
     Dosage: 642,37 MG/CYCLE (6 CYCLES, INTERVAL 21 DAYS)
     Route: 042
     Dates: start: 20240319, end: 20240319
  2. RUXIENCE [Suspect]
     Active Substance: RITUXIMAB-PVVR
     Dosage: 642,37 MG/CYCLE (6 CYCLES, INTERVAL 21 DAYS.)
     Route: 042
     Dates: start: 20240319, end: 20240319
  3. VINCRISTINE [Concomitant]
     Active Substance: VINCRISTINE
     Dosage: 2 MG, 1X/DAY
     Dates: start: 20240319, end: 20240319
  4. DOXORUBICIN HYDROCHLORIDE [Concomitant]
     Active Substance: DOXORUBICIN HYDROCHLORIDE
     Dosage: 85.65 MG, 1X/DAY
     Dates: start: 20240319, end: 20240319
  5. CYCLOPHOSPHAMIDE [Concomitant]
     Active Substance: CYCLOPHOSPHAMIDE
     Dosage: 1284.75 MG, 1X/DAY
     Dates: start: 20240319, end: 20240319

REACTIONS (2)
  - Hypotension [Recovered/Resolved]
  - Hyperhidrosis [Recovered/Resolved]

NARRATIVE: CASE EVENT DATE: 20240319
